FAERS Safety Report 5107544-8 (Version None)
Quarter: 2006Q3

REPORT INFORMATION
  Report Type: 
  Country: None (occurrence: None)
  Receive Date: 20060913
  Receipt Date: 20060913
  Transmission Date: 20061208
  Serious: Yes (Hospitalization, Other)
  Sender: FDA-Public Use
  Company Number: None

PATIENT
  Age: 72 Year
  Sex: Male
  Weight: 76.2043 kg

DRUGS (1)
  1. SERTRALINE [Suspect]
     Indication: ANXIETY
     Dosage: 100 MG QDAY PO
     Route: 048
     Dates: start: 20060829, end: 20060910

REACTIONS (12)
  - ASPARTATE AMINOTRANSFERASE INCREASED [None]
  - BUNDLE BRANCH BLOCK RIGHT [None]
  - CEREBRAL ATROPHY [None]
  - CEREBRAL ISCHAEMIA [None]
  - CONFABULATION [None]
  - DELIRIUM [None]
  - DILATATION ATRIAL [None]
  - ELECTROCARDIOGRAM POOR R-WAVE PROGRESSION [None]
  - HYPONATRAEMIA [None]
  - MINI MENTAL STATUS EXAMINATION ABNORMAL [None]
  - OXYGEN SATURATION DECREASED [None]
  - VASCULAR CALCIFICATION [None]
